FAERS Safety Report 16367745 (Version 1)
Quarter: 2019Q2

REPORT INFORMATION
  Report Type: Spontaneous
  Country: CH (occurrence: CH)
  Receive Date: 20190529
  Receipt Date: 20190529
  Transmission Date: 20190711
  Serious: Yes (Hospitalization, Other)
  Sender: FDA-Public Use
  Company Number: CH-PFIZER INC-2010RR-37968

PATIENT
  Age: 60 Year
  Sex: Male

DRUGS (1)
  1. VERAPAMIL HCL [Suspect]
     Active Substance: VERAPAMIL HYDROCHLORIDE
     Indication: PALPITATIONS
     Dosage: 80 MG, UNK
     Route: 065

REACTIONS (5)
  - Overdose [Recovered/Resolved]
  - Bradycardia [Recovering/Resolving]
  - Sopor [Recovering/Resolving]
  - Cardiogenic shock [Recovered/Resolved]
  - Toxicity to various agents [Recovering/Resolving]
